FAERS Safety Report 6403164-3 (Version None)
Quarter: 2009Q4

REPORT INFORMATION
  Report Type: 
  Country: None (occurrence: None)
  Receive Date: 20091015
  Receipt Date: 20091015
  Transmission Date: 20100525
  Serious: Yes (Disabling)
  Sender: FDA-Public Use
  Company Number: None

PATIENT
  Sex: Male
  Weight: 99.7913 kg

DRUGS (1)
  1. METHOTREXATE SODIUM [Suspect]
     Indication: MIXED CONNECTIVE TISSUE DISEASE
     Dosage: 1 SHOT IM DAILY
     Route: 030

REACTIONS (1)
  - INTERSTITIAL LUNG DISEASE [None]
